FAERS Safety Report 4767757-1 (Version None)
Quarter: 2005Q3

REPORT INFORMATION
  Report Type: 
  Country: None (occurrence: None)
  Receive Date: 20050912
  Receipt Date: 20050831
  Transmission Date: 20060218
  Serious: Yes (Death, Life-Threatening)
  Sender: FDA-Public Use
  Company Number: 2005117923

PATIENT
  Age: 90 Year
  Sex: Female
  Weight: 66.5 kg

DRUGS (10)
  1. ZOLOFT [Suspect]
     Indication: DEPRESSION
     Dosage: 25 MG (25 MG, 1 IN 1 D), ORAL
     Route: 048
     Dates: start: 20040920, end: 20041231
  2. PANTOPRAZOLE SODIUM [Suspect]
     Indication: ILL-DEFINED DISORDER
     Dosage: 20 MG (20 MG, 1 IN 1 D), ORAL
     Route: 048
     Dates: end: 20041231
  3. SPIRESIS (SPIRONOLACTONE) [Concomitant]
  4. OPAMOX (OXAZEPAM) [Concomitant]
  5. FUROSEMIDE [Concomitant]
  6. APURIN (ALLOPURINOL) [Concomitant]
  7. SPESICOR DOS (METOPROLOL SUCCINATE) [Concomitant]
  8. LOVACOL (LOVASTATIN) [Concomitant]
  9. PARA-TABS (PARACETAMOL) [Concomitant]
  10. DUPHALAC [Concomitant]

REACTIONS (5)
  - AGRANULOCYTOSIS [None]
  - BODY TEMPERATURE INCREASED [None]
  - CARDIAC FAILURE [None]
  - CORONARY ARTERY DISEASE [None]
  - GENERAL PHYSICAL CONDITION ABNORMAL [None]
